FAERS Safety Report 5639564-9 (Version None)
Quarter: 2008Q1

REPORT INFORMATION
  Report Type: 
  Country: None (occurrence: None)
  Receive Date: 20080131
  Receipt Date: 20071113
  Transmission Date: 20080703
  Serious: Yes (Hospitalization)
  Sender: FDA-Public Use
  Company Number: 163-21880-07110734

PATIENT
  Age: 72 Year
  Sex: Male
  Weight: 74.7 kg

DRUGS (8)
  1. REVLIMID [Suspect]
     Indication: MULTIPLE MYELOMA
     Dosage: 10 MG, DAILY X 21 DAYS, ORAL
     Route: 048
     Dates: start: 20071011, end: 20071031
  2. MELPHALAN (MELPHALAN) (CAPSULES) [Suspect]
     Indication: MULTIPLE MYELOMA
     Dosage: 10 MG, DAILY ON DAYS 1,2,3,4, ORAL
     Route: 048
     Dates: start: 20071011
  3. PREDNISONE [Suspect]
     Indication: MULTIPLE MYELOMA
     Dosage: 110 MG. DAILY ON DAYS 1,2,3,4, ORAL
     Route: 048
     Dates: start: 20071011
  4. LISINOPRIL [Concomitant]
  5. ATENOLOL [Concomitant]
  6. BACTRIM [Concomitant]
  7. COMPAZINE [Concomitant]
  8. INSULIN (INSULIN) [Concomitant]

REACTIONS (2)
  - RASH [None]
  - RENAL FAILURE ACUTE [None]
